FAERS Safety Report 7989066-X (Version None)
Quarter: 2011Q4

REPORT INFORMATION
  Report Type: 
  Country: None (occurrence: None)
  Receive Date: 20111215
  Receipt Date: 20111215
  Transmission Date: 20120403
  Serious: Yes (Hospitalization)
  Sender: FDA-Public Use
  Company Number: None

PATIENT
  Age: 66 Year
  Sex: Male
  Weight: 140.9 kg

DRUGS (2)
  1. SULFAMETHOXAZOLE AND TRIMETHOPRIM [Suspect]
     Indication: PNEUMONIA
     Dosage: 1 TAB BID PO
     Route: 048
     Dates: start: 20110731, end: 20110804
  2. MELOXICAM [Suspect]
     Indication: ARTHRITIS
     Dosage: 7.5 MG EVERY DAY PO
     Route: 048
     Dates: start: 20110611, end: 20110804

REACTIONS (3)
  - HYPOTENSION [None]
  - HYPERCALCAEMIA [None]
  - RENAL FAILURE ACUTE [None]
